FAERS Safety Report 6192177-5 (Version None)
Quarter: 2009Q2

REPORT INFORMATION
  Report Type: 
  Country: None (occurrence: None)
  Receive Date: 20090515
  Receipt Date: 20090508
  Transmission Date: 20091009
  Serious: Yes (Other)
  Sender: FDA-Public Use
  Company Number: JP-ABBOTT-09P-087-0572536-00

PATIENT
  Sex: Male
  Weight: 18 kg

DRUGS (6)
  1. CLARITH DS [Suspect]
     Indication: BRONCHITIS
     Route: 048
     Dates: start: 20090424, end: 20090424
  2. CLARITH DS [Suspect]
     Dates: start: 20081201
  3. ASVERIN [Concomitant]
     Indication: DRUG USE FOR UNKNOWN INDICATION
     Dosage: 0.55G DAILY
     Route: 048
     Dates: start: 20090424
  4. PERIACTIN [Concomitant]
     Indication: DRUG USE FOR UNKNOWN INDICATION
     Dosage: 0.55G DAILY
     Route: 048
     Dates: start: 20090424
  5. PULSMARIN A [Concomitant]
     Indication: DRUG USE FOR UNKNOWN INDICATION
     Dosage: 1G DAILY
     Route: 048
     Dates: start: 20090424
  6. MUCODYNE-DS [Concomitant]
     Indication: DRUG USE FOR UNKNOWN INDICATION
     Dosage: 1.5G DAILY
     Route: 048
     Dates: start: 20090424

REACTIONS (1)
  - DELIRIUM [None]
